FAERS Safety Report 8101730-0 (Version None)
Quarter: 2012Q1

REPORT INFORMATION
  Report Type: 
  Country: None (occurrence: None)
  Receive Date: 20120131
  Receipt Date: 20120123
  Transmission Date: 20120608
  Serious: Yes (Hospitalization)
  Sender: FDA-Public Use
  Company Number: PHHY2012IT007526

PATIENT
  Sex: Female

DRUGS (6)
  1. FOLINA [Concomitant]
  2. DIBASE [Concomitant]
  3. DICLOFENAC [Suspect]
     Indication: PAIN
     Route: 048
     Dates: start: 20111101, end: 20111117
  4. LIMPIDEX [Concomitant]
     Dosage: 30 MG, UNK
  5. ASPIRIN [Concomitant]
     Dosage: 100 MG, UNK
  6. CACIT [Concomitant]

REACTIONS (2)
  - HAEMORRHAGE [None]
  - HAEMOGLOBIN DECREASED [None]
